FAERS Safety Report 4754867-8 (Version None)
Quarter: 2005Q3

REPORT INFORMATION
  Report Type: 
  Country: None (occurrence: None)
  Receive Date: 20050829
  Receipt Date: 20050311
  Transmission Date: 20060218
  Serious: Yes (Other)
  Sender: FDA-Public Use
  Company Number: US-MERCK-0503USA02795

PATIENT
  Sex: Male

DRUGS (2)
  1. VIOXX [Suspect]
     Route: 048
     Dates: start: 19990101, end: 20040930
  2. CELEBREX [Concomitant]
     Route: 065
     Dates: start: 19990501, end: 20041001

REACTIONS (1)
  - CEREBROVASCULAR ACCIDENT [None]
